FAERS Safety Report 6071692-9 (Version None)
Quarter: 2009Q1

REPORT INFORMATION
  Report Type: 
  Country: None (occurrence: None)
  Receive Date: 20090209
  Receipt Date: 20090209
  Transmission Date: 20090719
  Serious: Yes (Hospitalization)
  Sender: FDA-Public Use
  Company Number: None

PATIENT
  Age: 49 Year
  Sex: Male
  Weight: 93.2 kg

DRUGS (1)
  1. DIVALPROEX [Suspect]
     Indication: SCHIZOAFFECTIVE DISORDER
     Dosage: 3500 MG EVERY DAY PO
     Route: 048
     Dates: end: 20081124

REACTIONS (2)
  - HYPERAMMONAEMIA [None]
  - METABOLIC ACIDOSIS [None]
